FAERS Safety Report 20786150 (Version 1)
Quarter: 2022Q2

REPORT INFORMATION
  Report Type: Spontaneous
  Country: US (occurrence: None)
  Receive Date: 20220504
  Receipt Date: 20220504
  Transmission Date: 20220721
  Serious: No
  Sender: FDA-Public Use
  Company Number: US-ROCHE-2952784

PATIENT
  Age: 46 Year
  Sex: Female
  Weight: 70.370 kg

DRUGS (6)
  1. OCREVUS [Suspect]
     Active Substance: OCRELIZUMAB
     Indication: Relapsing-remitting multiple sclerosis
     Dosage: ONGOING:YES
     Route: 042
     Dates: start: 20211025
  2. CRANBERRY [Concomitant]
     Active Substance: CRANBERRY
     Dosage: YES
     Route: 048
  3. MODAFINIL [Concomitant]
     Active Substance: MODAFINIL
     Dosage: YES
     Route: 048
     Dates: start: 2020
  4. FLUOXETINE [Concomitant]
     Active Substance: FLUOXETINE HYDROCHLORIDE
     Indication: Depression
     Dosage: YES
     Route: 048
     Dates: start: 2006
  5. FLUOXETINE [Concomitant]
     Active Substance: FLUOXETINE HYDROCHLORIDE
     Indication: Perinatal depression
  6. TECFIDERA [Concomitant]
     Active Substance: DIMETHYL FUMARATE

REACTIONS (2)
  - Pollakiuria [Not Recovered/Not Resolved]
  - Arthralgia [Not Recovered/Not Resolved]

NARRATIVE: CASE EVENT DATE: 20211026
